FAERS Safety Report 7511871-4 (Version None)
Quarter: 2011Q2

REPORT INFORMATION
  Report Type: 
  Country: None (occurrence: None)
  Receive Date: 20110531
  Receipt Date: 20110524
  Transmission Date: 20111010
  Serious: Yes (Death)
  Sender: FDA-Public Use
  Company Number: JP-ELI_LILLY_AND_COMPANY-JP201105005804

PATIENT
  Sex: Female

DRUGS (3)
  1. WARFARIN POTASSIUM [Concomitant]
     Dosage: 3 MG, QD
     Route: 048
     Dates: start: 20110429, end: 20110430
  2. ADCIRCA [Suspect]
     Indication: PULMONARY EMBOLISM
     Dosage: 20 MG, QD
     Route: 048
     Dates: start: 20110429, end: 20110430
  3. LASIX [Concomitant]
     Dosage: 40 MG, QD
     Route: 048
     Dates: start: 20110429, end: 20110430

REACTIONS (2)
  - OFF LABEL USE [None]
  - PULMONARY EMBOLISM [None]
